FAERS Safety Report 10169759 (Version 3)
Quarter: 2015Q2

REPORT INFORMATION
  Report Type: Spontaneous
  Country: US (occurrence: US)
  Receive Date: 20140513
  Receipt Date: 20150522
  Transmission Date: 20150821
  Serious: Yes (Other)
  Sender: FDA-Public Use
  Company Number: US-ASTRAZENECA-2014SE30830

PATIENT
  Age: 598 Month
  Sex: Female
  Weight: 68 kg

DRUGS (14)
  1. VITAMIN D [Concomitant]
     Active Substance: CHOLECALCIFEROL
     Dosage: OTC
  2. METOPROLOL TARTRATE. [Concomitant]
     Active Substance: METOPROLOL TARTRATE
     Indication: HEART RATE
  3. FASLODEX [Suspect]
     Active Substance: FULVESTRANT
     Indication: LUNG NEOPLASM MALIGNANT
     Dosage: 2 SHOTS MONTHLY
     Route: 030
     Dates: start: 2012
  4. AROMASIN [Concomitant]
     Active Substance: EXEMESTANE
     Indication: LUNG NEOPLASM MALIGNANT
  5. FASLODEX [Suspect]
     Active Substance: FULVESTRANT
     Indication: BREAST CANCER
     Dosage: 2 SHOTS MONTHLY
     Route: 030
     Dates: start: 2012
  6. FASLODEX [Suspect]
     Active Substance: FULVESTRANT
     Indication: BREAST CANCER METASTATIC
     Route: 030
     Dates: start: 20130414
  7. CALCIUM [Concomitant]
     Active Substance: CALCIUM
     Dosage: OTC
  8. FASLODEX [Suspect]
     Active Substance: FULVESTRANT
     Indication: BREAST CANCER
     Route: 030
     Dates: start: 20130414
  9. AROMASIN [Concomitant]
     Active Substance: EXEMESTANE
     Indication: BREAST CANCER
  10. TAMOXIFEN [Suspect]
     Active Substance: TAMOXIFEN
     Indication: BREAST CANCER FEMALE
     Route: 048
     Dates: start: 2007, end: 2012
  11. KLONOPIN [Concomitant]
     Active Substance: CLONAZEPAM
     Indication: NEOPLASM MALIGNANT
     Route: 048
  12. FASLODEX [Suspect]
     Active Substance: FULVESTRANT
     Indication: LUNG NEOPLASM MALIGNANT
     Route: 030
     Dates: start: 20130414
  13. FASLODEX [Suspect]
     Active Substance: FULVESTRANT
     Indication: BREAST CANCER METASTATIC
     Dosage: 2 SHOTS MONTHLY
     Route: 030
     Dates: start: 2012
  14. SERTRALINE [Concomitant]
     Active Substance: SERTRALINE HYDROCHLORIDE
     Indication: DEPRESSION
     Route: 048

REACTIONS (13)
  - Injection site pruritus [Unknown]
  - Musculoskeletal stiffness [Unknown]
  - Neuropathy peripheral [Not Recovered/Not Resolved]
  - Weight increased [Unknown]
  - Sciatica [Unknown]
  - Injection site mass [Not Recovered/Not Resolved]
  - Muscle spasms [Unknown]
  - Hot flush [Unknown]
  - Breast cancer metastatic [Unknown]
  - Stress [Unknown]
  - Fatigue [Not Recovered/Not Resolved]
  - Injection site pain [Not Recovered/Not Resolved]
  - Pain in extremity [Unknown]

NARRATIVE: CASE EVENT DATE: 201206
